FAERS Safety Report 4884050-7 (Version None)
Quarter: 2005Q4

REPORT INFORMATION
  Report Type: 
  Country: None (occurrence: None)
  Receive Date: 20051201
  Receipt Date: 20050907
  Transmission Date: 20060501
  Serious: No
  Sender: FDA-Public Use
  Company Number: 2005PV001873

PATIENT
  Age: 52 Year
  Sex: Male
  Weight: 84.369 kg

DRUGS (9)
  1. BYETTA [Suspect]
     Indication: DIABETES MELLITUS NON-INSULIN-DEPENDENT
     Dosage: SEE IMAGE
     Route: 058
     Dates: start: 20050626, end: 20050726
  2. BYETTA [Suspect]
     Indication: DIABETES MELLITUS NON-INSULIN-DEPENDENT
     Dosage: SEE IMAGE
     Route: 058
     Dates: start: 20050727
  3. GLUCOPHAGE [Concomitant]
  4. AVANDIA [Concomitant]
  5. LIPITOR [Concomitant]
  6. ATENOLOL [Concomitant]
  7. ASPIRIN [Concomitant]
  8. GLUCOPHAGE [Concomitant]
  9. AVANDIA [Concomitant]

REACTIONS (1)
  - BLOOD GLUCOSE INCREASED [None]
